FAERS Safety Report 6626705-X (Version None)
Quarter: 2010Q1

REPORT INFORMATION
  Report Type: 
  Country: None (occurrence: None)
  Receive Date: 20100308
  Receipt Date: 20100226
  Transmission Date: 20100710
  Serious: Yes (Life-Threatening, Hospitalization)
  Sender: FDA-Public Use
  Company Number: A-JP2007-17902

PATIENT
  Age: 13 Year
  Sex: Male
  Weight: 27 kg

DRUGS (20)
  1. TRACLEER [Suspect]
     Indication: PULMONARY ARTERIAL HYPERTENSION
     Dosage: 31.5 MG, BID, ORAL; 46.88 MG, BID, ORAL; 15.63 MG, BID, ORAL; 62.5 MG, BID, ORAL
     Route: 048
     Dates: start: 20060808, end: 20070329
  2. TRACLEER [Suspect]
     Indication: PULMONARY ARTERIAL HYPERTENSION
     Dosage: 31.5 MG, BID, ORAL; 46.88 MG, BID, ORAL; 15.63 MG, BID, ORAL; 62.5 MG, BID, ORAL
     Route: 048
     Dates: start: 20070330, end: 20070625
  3. TRACLEER [Suspect]
     Indication: PULMONARY ARTERIAL HYPERTENSION
     Dosage: 31.5 MG, BID, ORAL; 46.88 MG, BID, ORAL; 15.63 MG, BID, ORAL; 62.5 MG, BID, ORAL
     Route: 048
     Dates: start: 20070626, end: 20070701
  4. TRACLEER [Suspect]
     Indication: PULMONARY ARTERIAL HYPERTENSION
     Dosage: 31.5 MG, BID, ORAL; 46.88 MG, BID, ORAL; 15.63 MG, BID, ORAL; 62.5 MG, BID, ORAL
     Route: 048
     Dates: start: 20070702, end: 20070710
  5. TRACLEER [Suspect]
     Indication: PULMONARY ARTERIAL HYPERTENSION
     Dosage: 31.5 MG, BID, ORAL; 46.88 MG, BID, ORAL; 15.63 MG, BID, ORAL; 62.5 MG, BID, ORAL
     Route: 048
     Dates: start: 20070722, end: 20080120
  6. TRACLEER [Suspect]
     Indication: PULMONARY ARTERIAL HYPERTENSION
     Dosage: 31.5 MG, BID, ORAL; 46.88 MG, BID, ORAL; 15.63 MG, BID, ORAL; 62.5 MG, BID, ORAL
     Route: 048
     Dates: start: 20080721, end: 20080809
  7. TRACLEER [Suspect]
     Indication: PULMONARY ARTERIAL HYPERTENSION
     Dosage: 31.5 MG, BID, ORAL; 46.88 MG, BID, ORAL; 15.63 MG, BID, ORAL; 62.5 MG, BID, ORAL
     Route: 048
     Dates: start: 20090810
  8. CARBAMAZEPINE [Suspect]
  9. ZONISAMIDE [Suspect]
     Dates: start: 20070604, end: 20070618
  10. ASPIRIN [Concomitant]
  11. SILDENAFIL CITRATE [Concomitant]
  12. ASCORBIC ACID W/CALCIUM (CALCIUM, ASCORBIC ACID) [Concomitant]
  13. TEPRENONE (TEPRENONE) [Concomitant]
  14. NITROGLYCERIN [Concomitant]
  15. CARBAZOCPHROME SODIUM SULFONATE (CARBAZOCHROME SODIUM SULFONATE) [Concomitant]
  16. TRANEXAMIC ACID (TRANEXAMIC ACID) [Concomitant]
  17. FAMOTIDINE [Concomitant]
  18. BERAPROST SODIUM (BERAPROST SODIUM) [Concomitant]
  19. ENALAPRIL MALEATE [Concomitant]
  20. ALFACALCIDOL [Concomitant]

REACTIONS (13)
  - ASPIRATION BONE MARROW [None]
  - CONVULSION [None]
  - DRUG EFFECT DECREASED [None]
  - ENDOTRACHEAL INTUBATION [None]
  - EPILEPSY [None]
  - EPISTAXIS [None]
  - HAEMOPTYSIS [None]
  - HAEMORRHAGE [None]
  - LOSS OF CONSCIOUSNESS [None]
  - NASOPHARYNGITIS [None]
  - PLATELET COUNT DECREASED [None]
  - PLATELET TRANSFUSION [None]
  - PULMONARY HAEMORRHAGE [None]
